FAERS Safety Report 5209570-7 (Version None)
Quarter: 2007Q1

REPORT INFORMATION
  Report Type: 
  Country: None (occurrence: None)
  Receive Date: 20070116
  Receipt Date: 20070104
  Transmission Date: 20070707
  Serious: Yes (Other)
  Sender: FDA-Public Use
  Company Number: US-PFIZER INC-2007002224

PATIENT
  Sex: Male
  Weight: 80.7 kg

DRUGS (9)
  1. LYRICA [Suspect]
     Indication: NEURALGIA
     Dosage: DAILY DOSE:300MG
  2. OXYCONTIN [Suspect]
  3. CYMBALTA [Concomitant]
  4. VALIUM [Concomitant]
  5. SOMA [Concomitant]
  6. LOVASTATIN [Concomitant]
  7. PREVACID [Concomitant]
  8. TRAZODONE HCL [Concomitant]
  9. ULTRAM [Concomitant]

REACTIONS (8)
  - BALANCE DISORDER [None]
  - CHILLS [None]
  - COORDINATION ABNORMAL [None]
  - DRUG WITHDRAWAL SYNDROME [None]
  - DYSARTHRIA [None]
  - GAIT DISTURBANCE [None]
  - MYALGIA [None]
  - VISION BLURRED [None]
